FAERS Safety Report 18748736 (Version 1)
Quarter: 2021Q1

REPORT INFORMATION
  Report Type: Report from Study
  Country: US (occurrence: US)
  Receive Date: 20210115
  Receipt Date: 20210115
  Transmission Date: 20210419
  Serious: Yes (Other)
  Sender: FDA-Public Use
  Company Number: US-OTSUKA-2021_001006

PATIENT
  Sex: Female
  Weight: 54.42 kg

DRUGS (2)
  1. DECITABINE. [Suspect]
     Active Substance: DECITABINE
     Dosage: (5 WK)
     Route: 042
  2. DECITABINE. [Suspect]
     Active Substance: DECITABINE
     Indication: MYELODYSPLASTIC SYNDROME
     Dosage: ADMINISTERED 5 DAYS EVERY 4 WEEKS, THEN EVENTUALLY MOVED UP TO 5 DAYS EVERY DAY EVERY 5 WEEKS (4 WK)
     Route: 042
     Dates: start: 201802

REACTIONS (2)
  - Syncope [Recovered/Resolved]
  - General physical health deterioration [Recovered/Resolved]

NARRATIVE: CASE EVENT DATE: 2020
